FAERS Safety Report 6452941-1 (Version None)
Quarter: 2009Q4

REPORT INFORMATION
  Report Type: 
  Country: None (occurrence: None)
  Receive Date: 20091124
  Receipt Date: 20091117
  Transmission Date: 20100525
  Serious: Yes (Life-Threatening)
  Sender: FDA-Public Use
  Company Number: NL-TYCO HEALTHCARE/MALLINCKRODT-T200902121

PATIENT
  Sex: Female

DRUGS (1)
  1. OPTIRAY 350 [Suspect]
     Indication: ARTERIOGRAM CORONARY
     Dosage: UNK
     Route: 013
     Dates: start: 20091110, end: 20091110

REACTIONS (1)
  - VENTRICULAR FIBRILLATION [None]
